FAERS Safety Report 20015961 (Version 1)
Quarter: 2021Q4

REPORT INFORMATION
  Report Type: Spontaneous
  Country: US (occurrence: None)
  Receive Date: 20211102
  Receipt Date: 20211102
  Transmission Date: 20220304
  Serious: Yes (Hospitalization)
  Sender: FDA-Public Use
  Company Number: None

PATIENT
  Age: 69 Year
  Sex: Female

DRUGS (12)
  1. DIMETHYL FUMARATE [Suspect]
     Active Substance: DIMETHYL FUMARATE
     Indication: Multiple sclerosis
     Dosage: FREQUENCY : TWICE A DAY;?
     Route: 048
     Dates: start: 20210922
  2. AMLODIPINE [Concomitant]
     Active Substance: AMLODIPINE BESYLATE
  3. ACETAMINOPHEN\CODEINE PHOSPHATE [Concomitant]
     Active Substance: ACETAMINOPHEN\CODEINE PHOSPHATE
  4. ATORVASTATIN [Concomitant]
     Active Substance: ATORVASTATIN
  5. BACLOFEN [Concomitant]
     Active Substance: BACLOFEN
  6. BRILINTA [Concomitant]
     Active Substance: TICAGRELOR
  7. CARBAMAZEPIN, CELCOXIB, DOXEPIN [Concomitant]
  8. FUROSEMIDE, GABAPENTIN, GEMFIBROZIL, ISORB MONO [Concomitant]
  9. LIPITOR, METOCLOPRAM, METOPROLSUC, MULTIPLE VITAMIN [Concomitant]
  10. NITROGLYCERN, OMEPRAZOLE, PANTOPRAZOLE [Concomitant]
  11. QUIETIAPINE, RAMIPRIL, REPATHA, SILENOR, SPIRONOLACT, TIZANINDINE, [Concomitant]
  12. VOLTAREN [Concomitant]
     Active Substance: DICLOFENAC SODIUM

REACTIONS (3)
  - Loss of consciousness [None]
  - Fall [None]
  - Hypotension [None]

NARRATIVE: CASE EVENT DATE: 20211025
